FAERS Safety Report 18516013 (Version 1)
Quarter: 2020Q4

REPORT INFORMATION
  Report Type: Spontaneous
  Country: US (occurrence: US)
  Receive Date: 20201117
  Receipt Date: 20201117
  Transmission Date: 20210114
  Serious: Yes (Hospitalization)
  Sender: FDA-Public Use
  Company Number: None

PATIENT
  Sex: Male

DRUGS (21)
  1. ERLEADA [Suspect]
     Active Substance: APALUTAMIDE
     Indication: PROSTATE CANCER
     Route: 048
     Dates: start: 20200430
  2. LISINOPRIL. [Concomitant]
     Active Substance: LISINOPRIL
  3. METFORMIN [Concomitant]
     Active Substance: METFORMIN HYDROCHLORIDE
  4. NITROGLYCERIN SUB [Concomitant]
  5. TAMSULOSIN [Concomitant]
     Active Substance: TAMSULOSIN
  6. ATORVASTATIN [Concomitant]
     Active Substance: ATORVASTATIN
  7. DOK [Concomitant]
     Active Substance: DOCUSATE SODIUM
  8. TORSEMIDE. [Concomitant]
     Active Substance: TORSEMIDE
  9. ASPIRIN EC [Concomitant]
     Active Substance: ASPIRIN
  10. CLOPIDOGREL [Concomitant]
     Active Substance: CLOPIDOGREL BISULFATE
  11. ELIQUIS [Concomitant]
     Active Substance: APIXABAN
  12. METOPROL TAR [Concomitant]
  13. POT CL MICRO ER [Concomitant]
  14. HYDRALAZINE [Concomitant]
     Active Substance: HYDRALAZINE HYDROCHLORIDE
  15. METOPROL SUC ER [Concomitant]
  16. INDAPAMIDE. [Concomitant]
     Active Substance: INDAPAMIDE
  17. NOVOLIN 70/30 [Concomitant]
     Active Substance: INSULIN HUMAN
  18. SPIRONOLACT [Concomitant]
     Active Substance: SPIRONOLACTONE
  19. AMLODIPINE [Concomitant]
     Active Substance: AMLODIPINE BESYLATE
  20. JARDIANCE [Concomitant]
     Active Substance: EMPAGLIFLOZIN
  21. LOSARTAN POT [Concomitant]
     Active Substance: LOSARTAN POTASSIUM

REACTIONS (2)
  - Myocardial infarction [None]
  - Cardiac failure congestive [None]
